FAERS Safety Report 5261137-0 (Version None)
Quarter: 2007Q1

REPORT INFORMATION
  Report Type: 
  Country: None (occurrence: None)
  Receive Date: 20070309
  Receipt Date: 20070301
  Transmission Date: 20070707
  Serious: Yes (Hospitalization)
  Sender: FDA-Public Use
  Company Number: FR-ABBOTT-07P-056-0360810-00

PATIENT
  Age: 39 Year
  Sex: Male

DRUGS (3)
  1. MONONAXY [Suspect]
     Indication: DRUG USE FOR UNKNOWN INDICATION
     Route: 048
     Dates: start: 20070104, end: 20070107
  2. BUDESONIDE [Suspect]
     Indication: DRUG USE FOR UNKNOWN INDICATION
     Route: 055
     Dates: start: 20070104, end: 20070107
  3. DEXTROMETHORPHAN [Suspect]
     Indication: DRUG USE FOR UNKNOWN INDICATION
     Route: 048
     Dates: start: 20070104, end: 20070107

REACTIONS (3)
  - ANXIETY [None]
  - PARAESTHESIA [None]
  - PERSONALITY CHANGE [None]
